FAERS Safety Report 14645334 (Version 1)
Quarter: 2018Q1

REPORT INFORMATION
  Report Type: Spontaneous
  Country: US (occurrence: US)
  Receive Date: 20180315
  Receipt Date: 20180315
  Transmission Date: 20180509
  Serious: No
  Sender: FDA-Public Use
  Company Number: US-JNJFOC-20180233103

PATIENT
  Age: 5 Decade
  Sex: Female
  Weight: 45.36 kg

DRUGS (2)
  1. WOMENS ROGAINE UNSCENTED [Suspect]
     Active Substance: MINOXIDIL
     Indication: ALOPECIA
     Dosage: 1 CAP FULL ONE TIME PER DAY, MAY BE A YEAR AGO
     Route: 061
  2. WOMENS ROGAINE UNSCENTED [Suspect]
     Active Substance: MINOXIDIL
     Indication: ALOPECIA
     Dosage: 1 CAP FULL ONE TIME PER DAY, FROM ABOUT 2 MONTHS
     Route: 061

REACTIONS (2)
  - Product use in unapproved indication [Unknown]
  - Overdose [Unknown]
